FAERS Safety Report 4318076-9 (Version None)
Quarter: 2004Q1

REPORT INFORMATION
  Report Type: 
  Country: None (occurrence: None)
  Receive Date: 20040315
  Receipt Date: 20040304
  Transmission Date: 20041129
  Serious: Yes (Other)
  Sender: FDA-Public Use
  Company Number: US-JNJFOC-20040301298

PATIENT
  Sex: Female

DRUGS (2)
  1. REMICADE [Suspect]
     Indication: CROHN'S DISEASE
     Dosage: 345 MG, INTRAVENOUS
     Route: 042
  2. ZYRTEC [Concomitant]

REACTIONS (1)
  - LUPUS-LIKE SYNDROME [None]
